FAERS Safety Report 20174608 (Version 2)
Quarter: 2025Q3

REPORT INFORMATION
  Report Type: Spontaneous
  Country: EU (occurrence: EU)
  Receive Date: 20211213
  Receipt Date: 20250819
  Transmission Date: 20251021
  Serious: Yes (Other)
  Sender: AUROBINDO
  Company Number: EU-JNJFOC-20211136525

PATIENT
  Age: 79 Year
  Sex: Male

DRUGS (1)
  1. GALANTAMINE [Suspect]
     Active Substance: GALANTAMINE
     Indication: Product used for unknown indication
     Route: 065

REACTIONS (1)
  - Atrioventricular block second degree [Recovered/Resolved]
